FAERS Safety Report 6904058-7 (Version None)
Quarter: 2010Q3

REPORT INFORMATION
  Report Type: 
  Country: None (occurrence: None)
  Receive Date: 20100804
  Receipt Date: 20090305
  Transmission Date: 20110219
  Serious: No
  Sender: FDA-Public Use
  Company Number: US-PFIZER INC-2008157624

PATIENT
  Sex: Female
  Weight: 97 kg

DRUGS (12)
  1. LYRICA [Suspect]
     Indication: DIABETIC NEUROPATHY
     Dosage: 50 MG, 1X/DAY
     Route: 048
     Dates: start: 20081219
  2. PLAVIX [Concomitant]
     Dosage: UNK
     Route: 048
  3. BENAZEPRIL [Concomitant]
     Dosage: UNK
     Route: 048
  4. FUROSEMIDE [Concomitant]
     Dosage: UNK
     Route: 048
  5. SIMVASTATIN [Concomitant]
     Dosage: UNK
     Route: 048
  6. METOPROLOL TARTRATE [Concomitant]
     Dosage: UNK
     Route: 048
  7. MULTI-VITAMINS [Concomitant]
     Dosage: UNK
     Route: 048
  8. VITAMIN E [Concomitant]
     Dosage: UNK
     Route: 048
  9. VITAMIN B6 [Concomitant]
     Dosage: UNK
     Route: 048
  10. VITAMIN B-12 [Concomitant]
     Dosage: UNK
     Route: 048
  11. FISH OIL [Concomitant]
     Dosage: UNK
     Route: 048
  12. ACETYLSALICYLIC ACID [Concomitant]
     Dosage: UNK
     Route: 048

REACTIONS (2)
  - FEELING ABNORMAL [None]
  - NEURALGIA [None]
